FAERS Safety Report 15054096 (Version 2)
Quarter: 2018Q3

REPORT INFORMATION
  Report Type: Spontaneous
  Country: US (occurrence: US)
  Receive Date: 20180622
  Receipt Date: 20180820
  Transmission Date: 20181010
  Serious: Yes (Hospitalization, Other)
  Sender: FDA-Public Use
  Company Number: US-ALEXION-A201807677

PATIENT
  Age: 11 Week
  Sex: Female

DRUGS (1)
  1. SOLIRIS [Suspect]
     Active Substance: ECULIZUMAB
     Indication: ATYPICAL HAEMOLYTIC URAEMIC SYNDROME
     Dosage: UNK, Q2W
     Route: 042

REACTIONS (9)
  - Poor feeding infant [Not Recovered/Not Resolved]
  - Hypertension [Recovering/Resolving]
  - Haemoglobin decreased [Unknown]
  - Laboratory test abnormal [Unknown]
  - Complement factor decreased [Unknown]
  - Atrial enlargement [Unknown]
  - Joint range of motion decreased [Unknown]
  - Therapeutic response decreased [Unknown]
  - Vomiting [Not Recovered/Not Resolved]
